FAERS Safety Report 4429237-2 (Version None)
Quarter: 2004Q3

REPORT INFORMATION
  Report Type: 
  Country: None (occurrence: None)
  Receive Date: 20040817
  Receipt Date: 20040817
  Transmission Date: 20050211
  Serious: No
  Sender: FDA-Public Use
  Company Number: None

PATIENT
  Age: 46 Year
  Sex: Female

DRUGS (3)
  1. NEURONTIN [Suspect]
     Indication: DEPRESSION
     Dosage: 1 TWICE A DAY BY MOUTH
     Route: 048
     Dates: start: 20040721, end: 20040724
  2. NEURONTIN [Suspect]
     Indication: INSOMNIA
     Dosage: 1 TWICE A DAY BY MOUTH
     Route: 048
     Dates: start: 20040721, end: 20040724
  3. NEURONTIN [Suspect]
     Indication: PAIN
     Dosage: 1 TWICE A DAY BY MOUTH
     Route: 048
     Dates: start: 20040721, end: 20040724

REACTIONS (4)
  - DEPRESSION [None]
  - INSOMNIA [None]
  - PAIN [None]
  - PHARMACEUTICAL PRODUCT COMPLAINT [None]
